FAERS Safety Report 5514922-1 (Version None)
Quarter: 2007Q4

REPORT INFORMATION
  Report Type: 
  Country: None (occurrence: None)
  Receive Date: 20071113
  Receipt Date: 20061004
  Transmission Date: 20080405
  Serious: No
  Sender: FDA-Public Use
  Company Number: A0622496A

PATIENT
  Sex: Female

DRUGS (6)
  1. COREG [Suspect]
     Indication: HYPERTENSION
     Dosage: 6.25MG THREE TIMES PER DAY
     Route: 048
  2. LIPITOR [Concomitant]
  3. ASPIRIN [Concomitant]
  4. FOLATE [Concomitant]
  5. VITAMINS [Concomitant]
  6. LEVOXYL [Concomitant]

REACTIONS (1)
  - OEDEMA [None]
